FAERS Safety Report 7571316-5 (Version None)
Quarter: 2011Q2

REPORT INFORMATION
  Report Type: 
  Country: None (occurrence: None)
  Receive Date: 20110624
  Receipt Date: 20110607
  Transmission Date: 20111010
  Serious: Yes (Congenital Anomaly)
  Sender: FDA-Public Use
  Company Number: A0932722A

PATIENT
  Sex: Female

DRUGS (5)
  1. PAXIL [Suspect]
     Indication: PANIC REACTION
     Dosage: 20MG AT NIGHT
     Route: 064
     Dates: start: 20000124
  2. XANAX [Concomitant]
  3. PROZAC [Concomitant]
     Dates: start: 20000419
  4. NEURONTIN [Concomitant]
     Dates: start: 20000124
  5. WELLBUTRIN SR [Concomitant]
     Route: 064
     Dates: start: 20000310, end: 20000419

REACTIONS (5)
  - LIMB ASYMMETRY [None]
  - FEMORAL ANTEVERSION [None]
  - TIBIAL TORSION [None]
  - TALIPES [None]
  - DRUG EXPOSURE DURING PREGNANCY [None]
